FAERS Safety Report 6516826-4 (Version None)
Quarter: 2009Q4

REPORT INFORMATION
  Report Type: 
  Country: None (occurrence: None)
  Receive Date: 20091223
  Receipt Date: 20091211
  Transmission Date: 20100525
  Serious: Yes (Hospitalization, Other)
  Sender: FDA-Public Use
  Company Number: PHHY2009JP42139

PATIENT
  Age: 78 Year
  Sex: Female

DRUGS (6)
  1. TEGRETOL [Suspect]
     Indication: TRIGEMINAL NEURALGIA
     Dosage: 200 MG/DAY
     Route: 048
     Dates: start: 20051101
  2. TEGRETOL [Suspect]
     Dosage: 100 MG/DAY
     Route: 048
     Dates: start: 20081001
  3. TEGRETOL [Suspect]
     Dosage: 200 MG/DAY
     Route: 048
     Dates: start: 20090101
  4. TEGRETOL [Suspect]
     Dosage: 280 MG/DAY
     Route: 048
     Dates: start: 20090301
  5. ZONISAMIDE [Concomitant]
     Indication: TRIGEMINAL NEURALGIA
     Dosage: 100 MG, UNK
     Route: 048
     Dates: start: 20060201
  6. GOREI-SAN [Concomitant]
     Indication: TRIGEMINAL NEURALGIA
     Dosage: UNK
     Route: 048

REACTIONS (7)
  - CEREBRAL INFARCTION [None]
  - DEPRESSED LEVEL OF CONSCIOUSNESS [None]
  - DIZZINESS [None]
  - EATING DISORDER [None]
  - GAIT DISTURBANCE [None]
  - GASTROINTESTINAL DISORDER [None]
  - PAIN [None]
